FAERS Safety Report 9750864 (Version 1)
Quarter: 2013Q4

REPORT INFORMATION
  Report Type: Report from Study
  Country: US (occurrence: US)
  Receive Date: 20131212
  Receipt Date: 20131212
  Transmission Date: 20140711
  Serious: Yes (Hospitalization, Other)
  Sender: FDA-Public Use
  Company Number: US-BAXTER-2013BAX048825

PATIENT
  Age: 59 Year
  Sex: Male
  Weight: 74.91 kg

DRUGS (11)
  1. GAMMAGARD LIQUID [Suspect]
     Indication: MYASTHENIA GRAVIS
     Dosage: ADMINISTERED OVER 5 HOURS ON EACH DAY
     Route: 042
     Dates: start: 20131121, end: 20131122
  2. GAMMAGARD LIQUID [Suspect]
     Indication: OFF LABEL USE
     Route: 042
  3. GAMUNEX [Suspect]
     Indication: MYASTHENIA GRAVIS
     Route: 042
     Dates: start: 20131123, end: 20131125
  4. OMEGA 3 [Concomitant]
     Indication: PRODUCT USED FOR UNKNOWN INDICATION
  5. ASPIRIN [Concomitant]
     Indication: PRODUCT USED FOR UNKNOWN INDICATION
     Route: 048
  6. CICLOPIROX [Concomitant]
     Indication: PRODUCT USED FOR UNKNOWN INDICATION
     Route: 061
  7. PROAIR [Concomitant]
     Indication: CHRONIC OBSTRUCTIVE PULMONARY DISEASE
     Dosage: Q 4 HOURS AS NEEDED
  8. ALBUTEROL [Concomitant]
     Indication: CHRONIC OBSTRUCTIVE PULMONARY DISEASE
     Dosage: AS NEEDED
     Route: 055
  9. IPRATROPIUM [Concomitant]
     Route: 055
  10. NITROSTAT [Concomitant]
     Indication: CHEST DISCOMFORT
     Dosage: EVERY 4-6 HOURS AS NEEDED
     Route: 060
  11. MESTINON [Concomitant]
     Indication: MYASTHENIA GRAVIS
     Route: 048

REACTIONS (7)
  - Pyrexia [Recovered/Resolved]
  - Chills [Recovered/Resolved]
  - Abdominal pain [Recovered/Resolved]
  - Epistaxis [Recovering/Resolving]
  - Dyspnoea [Recovering/Resolving]
  - Chest discomfort [Recovered/Resolved with Sequelae]
  - Bronchitis [Recovered/Resolved]
